FAERS Safety Report 21811015 (Version 1)
Quarter: 2023Q1

REPORT INFORMATION
  Report Type: Spontaneous
  Country: US (occurrence: None)
  Receive Date: 20230103
  Receipt Date: 20230103
  Transmission Date: 20230418
  Serious: No
  Sender: FDA-Public Use
  Company Number: None

PATIENT
  Sex: Male

DRUGS (3)
  1. OPSUMIT [Suspect]
     Active Substance: MACITENTAN
     Indication: Pulmonary arterial hypertension
     Dosage: FREQUENCY : DAILY;?
     Route: 048
     Dates: start: 201403
  2. ORENITRAM [Suspect]
     Active Substance: TREPROSTINIL
  3. TADALAFIL [Suspect]
     Active Substance: TADALAFIL

REACTIONS (3)
  - Incorrect dose administered [None]
  - Respiratory disorder [None]
  - Visual impairment [None]
